FAERS Safety Report 24203552 (Version 1)
Quarter: 2024Q3

REPORT INFORMATION
  Report Type: Spontaneous
  Country: US (occurrence: US)
  Receive Date: 20240813
  Receipt Date: 20240813
  Transmission Date: 20241017
  Serious: No
  Sender: HIKMA
  Company Number: US-HIKMA PHARMACEUTICALS USA INC.-US-H14001-23-64657

PATIENT
  Age: 67 Year
  Sex: Male

DRUGS (3)
  1. CODEINE [Suspect]
     Active Substance: CODEINE
     Indication: Pain
     Dosage: 30 MILLIGRAM, QID, AS NEEDED
     Route: 048
  2. CHOLECALCIFEROL [Concomitant]
     Active Substance: CHOLECALCIFEROL
     Indication: Product used for unknown indication
     Dosage: 50000 INTERNATIONAL UNIT, WEEKLY
     Route: 065
  3. FLUTICASONE [Concomitant]
     Active Substance: FLUTICASONE
     Indication: Hypersensitivity
     Dosage: 2 DOSAGE FORM IN EACH NOSTRIL, PRN, DAILY
     Route: 045

REACTIONS (3)
  - Abnormal dreams [Unknown]
  - Behaviour disorder [Unknown]
  - Drug ineffective [Unknown]

NARRATIVE: CASE EVENT DATE: 20230617
